FAERS Safety Report 7406276-0 (Version None)
Quarter: 2011Q2

REPORT INFORMATION
  Report Type: 
  Country: None (occurrence: None)
  Receive Date: 20110411
  Receipt Date: 20110405
  Transmission Date: 20111010
  Serious: Yes (Hospitalization)
  Sender: FDA-Public Use
  Company Number: JP-SANOFI-AVENTIS-2011SA010891

PATIENT
  Age: 69 Year
  Sex: Female

DRUGS (18)
  1. APIDRA [Suspect]
     Dosage: 44 UNITS (16-12-16)/DAY
     Route: 058
     Dates: start: 20100819, end: 20100820
  2. APIDRA [Suspect]
     Dosage: 34 UNITS (10-12-12)/DAY
     Route: 058
     Dates: start: 20101126
  3. LANTUS [Concomitant]
     Dosage: DOSE:26 UNIT(S)
     Route: 058
     Dates: start: 20100821, end: 20100828
  4. RENIVACE [Concomitant]
     Indication: HYPERTENSION
     Route: 048
  5. APIDRA [Suspect]
     Dosage: 38 UNITS (14-10-14)/DAY
     Route: 058
     Dates: start: 20100821, end: 20100911
  6. APIDRA [Suspect]
     Dosage: 46 UNITS (16-12-18)/DAY
     Route: 058
     Dates: start: 20100912, end: 20101007
  7. ALDACTONE [Concomitant]
     Indication: HYPERTENSION
     Route: 048
  8. LASIX [Concomitant]
     Indication: HYPERTENSION
     Route: 048
  9. LANTUS [Concomitant]
     Dosage: DOSE:28 UNIT(S)
     Route: 058
     Dates: start: 20100819, end: 20100820
  10. LANTUS [Concomitant]
     Dosage: DOSE:18 UNIT(S)
     Route: 058
     Dates: start: 20100829, end: 20101007
  11. LANTUS [Concomitant]
     Dosage: DOSE:32 UNIT(S)
     Route: 058
     Dates: start: 20100723, end: 20100818
  12. APIDRA [Suspect]
     Indication: DIABETES MELLITUS
     Dosage: 36 UNITS (14-814)/DAY
     Route: 058
     Dates: start: 20100716, end: 20100722
  13. LANTUS [Concomitant]
     Indication: DIABETES MELLITUS
     Dosage: DOSE:30 UNIT(S)
     Route: 058
     Dates: start: 20100716, end: 20100722
  14. LANTUS [Concomitant]
     Dosage: DOSE:10 UNIT(S)
     Route: 058
     Dates: start: 20110121
  15. APIDRA [Suspect]
     Dosage: 56 UNITS (20-16-20)/DAY
     Route: 058
     Dates: start: 20100723, end: 20100818
  16. HUMALOG [Concomitant]
     Indication: DIABETES MELLITUS
     Dosage: 46 UNITS (18-10-18)/DAY
     Dates: end: 20100716
  17. APIDRA [Suspect]
     Dosage: 40 UNITS (12-12-16)/DAY
     Route: 058
     Dates: start: 20101008, end: 20101125
  18. LANTUS [Concomitant]
     Dosage: DOSE:14 UNIT(S)
     Route: 058
     Dates: start: 20101008, end: 20110120

REACTIONS (1)
  - ARTHRITIS [None]
